FAERS Safety Report 5202800-7 (Version None)
Quarter: 2006Q4

REPORT INFORMATION
  Report Type: 
  Country: None (occurrence: None)
  Receive Date: 20061018
  Receipt Date: 20060313
  Transmission Date: 20070319
  Serious: Yes (Hospitalization)
  Sender: FDA-Public Use
  Company Number: 06P-163-0325516-00

PATIENT
  Age: 36 Year
  Sex: Male
  Weight: 69.4003 kg

DRUGS (23)
  1. KALETRA [Suspect]
     Indication: HIV INFECTION
     Dosage: 133.3 MG, 2 IN 1 D, PER ORAL
     Route: 048
     Dates: start: 20050609, end: 20051129
  2. BLINDED THERAPY UK-427, 857 [Suspect]
     Indication: HIV INFECTION
     Dosage: 2 IN 1 D, PER ORAL
     Route: 048
     Dates: start: 20050609, end: 20051129
  3. LAMIVUDINE [Suspect]
     Indication: HIV INFECTION
     Dosage: 150 MG, 2 IN 1 D, PER ORAL
     Route: 048
     Dates: start: 20050609, end: 20051129
  4. ABACAVIR SULFATE [Suspect]
     Indication: HIV INFECTION
     Dosage: 300 MG, 2 IN 1 D, PER ORAL
     Route: 048
     Dates: start: 20050609, end: 20051129
  5. CYANACOBALAMIN [Concomitant]
  6. TESTOSTERONE [Concomitant]
  7. LOMOTIL [Concomitant]
  8. BOOST [Concomitant]
  9. MEGESTROL ACETATE [Concomitant]
  10. LORAZEPAM [Concomitant]
  11. HYDROCORTISONE [Concomitant]
  12. B-COMPLEX ^LECIVA^ [Concomitant]
  13. LEVOCARNITINE [Concomitant]
  14. NICOTINIC ACID [Concomitant]
  15. FLUCONAZOLE [Concomitant]
  16. KETOCONAZOLE [Concomitant]
  17. TRIAMCINOLONE ACETONIDE [Concomitant]
  18. KETOCONAZOLE [Concomitant]
  19. DRONABINOL [Concomitant]
  20. ACYCLOVIR [Concomitant]
  21. ZOLPIDEM TARTRATE [Concomitant]
  22. LANSOPRAZOLE [Concomitant]
  23. BACTRIM [Concomitant]

REACTIONS (7)
  - CRYPTOCOCCOSIS [None]
  - FOOD INTOLERANCE [None]
  - HEPATITIS [None]
  - LIVER FUNCTION TEST ABNORMAL [None]
  - PANCREATITIS [None]
  - RENAL FAILURE [None]
  - TENDONITIS [None]
